FAERS Safety Report 8082400-4 (Version None)
Quarter: 2012Q1

REPORT INFORMATION
  Report Type: 
  Country: None (occurrence: None)
  Receive Date: 20120127
  Receipt Date: 20110214
  Transmission Date: 20120608
  Serious: No
  Sender: FDA-Public Use
  Company Number: US-ABBOTT-11P-163-0706186-00

PATIENT
  Sex: Male
  Weight: 113.5 kg

DRUGS (5)
  1. TRIAMTERENE [Concomitant]
     Indication: HYPERTENSION
  2. HUMIRA [Suspect]
     Indication: RHEUMATOID ARTHRITIS
     Dosage: 2 SHOTS, 3RD TODAY
     Route: 058
     Dates: start: 20110101
  3. COMBIGAN [Concomitant]
     Indication: ARTHRITIS
     Dosage: EYE DROPS
     Route: 031
  4. METOPROLOL TARTRATE [Concomitant]
     Indication: HYPERTENSION
  5. VITAMIN D [Concomitant]
     Indication: PRODUCT USED FOR UNKNOWN INDICATION

REACTIONS (3)
  - MUSCLE SPASMS [None]
  - PAIN IN EXTREMITY [None]
  - ASTHENIA [None]
